FAERS Safety Report 24381263 (Version 1)
Quarter: 2024Q4

REPORT INFORMATION
  Report Type: Spontaneous
  Country: US (occurrence: US)
  Receive Date: 20241001
  Receipt Date: 20241001
  Transmission Date: 20250115
  Serious: Yes (Hospitalization, Other)
  Sender: RANBAXY
  Company Number: US-SUN PHARMACEUTICAL INDUSTRIES LTD-2024R1-470451

PATIENT
  Age: 44 Year
  Sex: Male

DRUGS (3)
  1. MINOCYCLINE [Suspect]
     Active Substance: MINOCYCLINE HYDROCHLORIDE
     Indication: Acinetobacter test positive
     Dosage: UNK
     Route: 065
  2. CEFIDEROCOL [Suspect]
     Active Substance: CEFIDEROCOL
     Indication: Acinetobacter test positive
     Dosage: UNK
     Route: 065
  3. POLYMYXIN [Suspect]
     Active Substance: POLYMYXIN
     Indication: Acinetobacter test positive
     Dosage: UNK
     Route: 065

REACTIONS (1)
  - Condition aggravated [Unknown]
